FAERS Safety Report 8128259-8 (Version None)
Quarter: 2012Q1

REPORT INFORMATION
  Report Type: 
  Country: None (occurrence: None)
  Receive Date: 20120210
  Receipt Date: 20120202
  Transmission Date: 20120608
  Serious: Yes (Death)
  Sender: FDA-Public Use
  Company Number: IE-ROCHE-1035170

PATIENT
  Sex: Male

DRUGS (7)
  1. CAPRINOL [Concomitant]
  2. LUCENTIS [Suspect]
     Indication: PRODUCT USED FOR UNKNOWN INDICATION
     Dosage: DOSE : 10 MG/ML
     Route: 050
     Dates: start: 20110831
  3. OXYGEN [Concomitant]
  4. EFFEXOR [Concomitant]
  5. LUCENTIS [Suspect]
     Route: 050
     Dates: start: 20111007
  6. LUCENTIS [Suspect]
     Route: 050
     Dates: start: 20111104
  7. DICLOFENAC SODIUM [Concomitant]

REACTIONS (2)
  - MYOCARDIAL INFARCTION [None]
  - EYE INFECTION [None]
